FAERS Safety Report 13582610 (Version 2)
Quarter: 2017Q3

REPORT INFORMATION
  Report Type: Report from Study
  Country: US (occurrence: US)
  Receive Date: 20170525
  Receipt Date: 20170714
  Transmission Date: 20171127
  Serious: No
  Sender: FDA-Public Use
  Company Number: US-ROCHE-1936296

PATIENT
  Sex: Female
  Weight: 68.1 kg

DRUGS (1)
  1. OCREVUS [Suspect]
     Active Substance: OCRELIZUMAB
     Indication: PRIMARY PROGRESSIVE MULTIPLE SCLEROSIS
     Dosage: SECOND INFUSION DATE: 12/MAY/2017
     Route: 042
     Dates: start: 20170428

REACTIONS (7)
  - Productive cough [Unknown]
  - Nasopharyngitis [Recovered/Resolved]
  - Urinary incontinence [Unknown]
  - Stress [Unknown]
  - Feeling abnormal [Unknown]
  - Pulmonary congestion [Unknown]
  - Musculoskeletal pain [Not Recovered/Not Resolved]
